FAERS Safety Report 11935009 (Version 1)
Quarter: 2016Q1

REPORT INFORMATION
  Report Type: Not Available
  Country: HR (occurrence: HR)
  Receive Date: 20160121
  Receipt Date: 20160121
  Transmission Date: 20160526
  Serious: Yes (Other)
  Sender: FDA-Public Use
  Company Number: HR-ANIPHARMA-2016-HR-000001

PATIENT
  Age: 59 Year
  Sex: Female

DRUGS (2)
  1. ERLOTINIB [Suspect]
     Active Substance: ERLOTINIB
     Dosage: 150 MG PER DAY
     Route: 048
  2. OXYCODONE (NON-SPECIFIC) [Suspect]
     Active Substance: OXYCODONE

REACTIONS (2)
  - Rhabdomyolysis [Unknown]
  - Drug interaction [Unknown]
